FAERS Safety Report 6859641-4 (Version None)
Quarter: 2010Q3

REPORT INFORMATION
  Report Type: 
  Country: None (occurrence: None)
  Receive Date: 20100719
  Receipt Date: 20080630
  Transmission Date: 20110219
  Serious: Yes (Disabling, Other)
  Sender: FDA-Public Use
  Company Number: US-PFIZER INC-2008020949

PATIENT
  Sex: Female
  Weight: 58.1 kg

DRUGS (1)
  1. CHANTIX [Suspect]

REACTIONS (1)
  - RASH GENERALISED [None]
